FAERS Safety Report 6427973-X (Version None)
Quarter: 2009Q4

REPORT INFORMATION
  Report Type: 
  Country: None (occurrence: None)
  Receive Date: 20091105
  Receipt Date: 20091027
  Transmission Date: 20100525
  Serious: Yes (Other)
  Sender: FDA-Public Use
  Company Number: US-ROCHE-631490

PATIENT
  Sex: Male

DRUGS (13)
  1. PEG-INTERFERON ALFA 2A (RO 25-8310) [Suspect]
     Indication: HEPATITIS C
     Route: 058
     Dates: start: 20080721
  2. RIBAVIRIN [Suspect]
     Indication: HEPATITIS C
     Dosage: 400 MG EVERY EVERY AM AND 600 MG EVERY PM.
     Route: 048
     Dates: start: 20080721
  3. BLINDED VX-950 [Suspect]
     Indication: HEPATITIS C
     Route: 048
     Dates: start: 20080721, end: 20081013
  4. CLARITIN [Concomitant]
     Indication: PRURITUS
     Route: 061
     Dates: start: 20081217
  5. TRAMADOL HCL [Concomitant]
     Indication: HEADACHE
     Route: 048
     Dates: start: 20081117
  6. LOTRISONE [Concomitant]
     Route: 061
     Dates: start: 20081003
  7. ANUSOL HC [Concomitant]
     Route: 061
     Dates: start: 20080730
  8. TYLENOL [Concomitant]
     Indication: INSOMNIA
     Route: 048
     Dates: start: 20080818, end: 20090203
  9. LUNESTA [Concomitant]
     Indication: INSOMNIA
     Route: 048
     Dates: start: 20080813, end: 20090203
  10. MAALOX [Concomitant]
     Indication: CHEILITIS
     Route: 048
     Dates: start: 20080727, end: 20080805
  11. LANACANE [Concomitant]
     Indication: PRURITUS
     Route: 061
     Dates: start: 20080727, end: 20080801
  12. ADVIL [Concomitant]
     Route: 048
     Dates: start: 20080721, end: 20080730
  13. TYLENOL [Concomitant]
     Route: 048
     Dates: start: 20080730, end: 20080929

REACTIONS (1)
  - SALIVARY GLAND CALCULUS [None]
